FAERS Safety Report 15121396 (Version 1)
Quarter: 2018Q3

REPORT INFORMATION
  Report Type: Spontaneous
  Country: ES (occurrence: ES)
  Receive Date: 20180709
  Receipt Date: 20180709
  Transmission Date: 20181010
  Serious: Yes (Other)
  Sender: FDA-Public Use
  Company Number: ES-PFIZER INC-2018269541

PATIENT

DRUGS (1)
  1. OXALIPLATIN. [Suspect]
     Active Substance: OXALIPLATIN
     Route: 042
     Dates: start: 20180111

REACTIONS (5)
  - Dysphonia [Unknown]
  - Aphasia [Unknown]
  - Gait disturbance [Unknown]
  - Speech disorder [Unknown]
  - Neuropathy peripheral [Unknown]

NARRATIVE: CASE EVENT DATE: 20180111
